FAERS Safety Report 13558442 (Version 1)
Quarter: 2017Q2

REPORT INFORMATION
  Report Type: Spontaneous
  Country: US (occurrence: US)
  Receive Date: 20170518
  Receipt Date: 20170518
  Transmission Date: 20170830
  Serious: No
  Sender: FDA-Public Use
  Company Number: US-GLAXOSMITHKLINE-US2017072784

PATIENT
  Age: 80 Year
  Sex: Male

DRUGS (1)
  1. INCRUSE ELLIPTA [Suspect]
     Active Substance: UMECLIDINIUM BROMIDE
     Indication: EMPHYSEMA
     Dosage: 1 PUFF(S), 1D
     Route: 055
     Dates: start: 201704

REACTIONS (6)
  - Abdominal discomfort [Recovered/Resolved]
  - Flatulence [Recovered/Resolved]
  - Dizziness [Recovered/Resolved]
  - Muscle fatigue [Unknown]
  - Lactose intolerance [Unknown]
  - Abdominal distension [Recovered/Resolved]

NARRATIVE: CASE EVENT DATE: 201704
